FAERS Safety Report 8099768-5 (Version None)
Quarter: 2012Q1

REPORT INFORMATION
  Report Type: 
  Country: None (occurrence: None)
  Receive Date: 20120129
  Receipt Date: 20110914
  Transmission Date: 20120608
  Serious: No
  Sender: FDA-Public Use
  Company Number: US-ABBOTT-11P-163-0855569-00

PATIENT
  Sex: Male
  Weight: 122.58 kg

DRUGS (6)
  1. DEPAKOTE [Concomitant]
     Indication: CONVULSION
  2. LASIX [Concomitant]
     Indication: PRODUCT USED FOR UNKNOWN INDICATION
  3. HUMIRA [Suspect]
     Indication: PSORIASIS
     Dates: start: 20090101
  4. DILANTIN [Concomitant]
     Indication: CONVULSION
  5. HUMIRA [Suspect]
     Indication: RHEUMATOID ARTHRITIS
     Dates: start: 20090101, end: 20090101
  6. MORPHINE [Concomitant]
     Indication: BACK DISORDER
     Dosage: PUMP

REACTIONS (5)
  - EYE DISCHARGE [None]
  - NASAL CONGESTION [None]
  - RHINORRHOEA [None]
  - HYPERSENSITIVITY [None]
  - SINUSITIS [None]
